FAERS Safety Report 17512141 (Version 4)
Quarter: 2020Q2

REPORT INFORMATION
  Report Type: Spontaneous
  Country: CA (occurrence: CA)
  Receive Date: 20200306
  Receipt Date: 20200422
  Transmission Date: 20200713
  Serious: Yes (Other)
  Sender: FDA-Public Use
  Company Number: CA-PFIZER INC-2020101522

PATIENT
  Age: 19 Year
  Sex: Female

DRUGS (3)
  1. VOLTAREN [DICLOFENAC DIETHYLAMINE] [Concomitant]
     Active Substance: DICLOFENAC DIETHYLAMINE
     Dosage: 50 MG, 2X/DAY
     Route: 065
     Dates: start: 201907
  2. SULFASALAZINE. [Suspect]
     Active Substance: SULFASALAZINE
     Dosage: 1000 MG, 2X/DAY
     Route: 065
     Dates: start: 20190901
  3. PREDNISONE. [Concomitant]
     Active Substance: PREDNISONE
     Dosage: 10 MG, 1X/DAY
     Route: 065
     Dates: start: 2019

REACTIONS (5)
  - Spondyloarthropathy [Unknown]
  - Mobility decreased [Unknown]
  - Crohn^s disease [Unknown]
  - Urinary tract infection [Recovered/Resolved]
  - Gastrointestinal disorder [Unknown]

NARRATIVE: CASE EVENT DATE: 202001
